FAERS Safety Report 6585570-X (Version None)
Quarter: 2010Q1

REPORT INFORMATION
  Report Type: 
  Country: None (occurrence: None)
  Receive Date: 20100217
  Receipt Date: 20100208
  Transmission Date: 20100710
  Serious: Yes (Hospitalization, Other)
  Sender: FDA-Public Use
  Company Number: GXKR2010US01627

PATIENT
  Age: 52 Year
  Sex: Female
  Weight: 49 kg

DRUGS (27)
  1. FENTANYL [Suspect]
     Indication: ANAESTHESIA
     Dosage: 100 UG, UNK
     Dates: start: 20070801
  2. FENTANYL [Suspect]
     Dosage: 150 UG, UNK
     Dates: start: 20060701
  3. FENTANYL [Suspect]
     Dosage: 160 UG, UNK
     Dates: start: 20061201
  4. FENTANYL [Suspect]
     Dosage: 50 UG, UNK
     Dates: start: 20051201
  5. MIDAZOLAM (NGX) [Suspect]
     Indication: ANAESTHESIA
     Dosage: 2 MG, UNK
     Dates: start: 20070801
  6. MIDAZOLAM (NGX) [Suspect]
     Dosage: 2 MG, UNK
     Dates: start: 20061201
  7. MIDAZOLAM (NGX) [Suspect]
     Dosage: 2 MG, UNK
     Dates: start: 20051201
  8. PROPOFOL (NGX) [Suspect]
     Indication: ANAESTHESIA
     Dosage: 160 MG, UNK
     Dates: start: 20051201
  9. PROPOFOL (NGX) [Suspect]
     Dosage: 100 MG, UNK
     Dates: start: 20060701
  10. PROPOFOL (NGX) [Suspect]
     Dosage: 140 MG, UNK
     Dates: start: 20061201
  11. PROPOFOL (NGX) [Suspect]
     Dosage: 100 MG, UNK
     Dates: start: 20070801
  12. SUCCINYLCHOLINE CHLORIDE [Suspect]
     Indication: ANAESTHESIA
     Dosage: 40 MG, UNK
     Dates: start: 20070801
  13. SUCCINYLCHOLINE CHLORIDE [Suspect]
     Dosage: UNK
     Dates: start: 20061201
  14. ISOFLURANE [Suspect]
     Indication: ANAESTHESIA
     Dosage: 1 %, UNK
     Dates: start: 20070801
  15. ISOFLURANE [Suspect]
     Dosage: 1.1 %, UNK
     Dates: start: 20051201
  16. ISOFLURANE [Suspect]
     Dosage: 0.3 %, UNK
     Dates: start: 20060701
  17. ISOFLURANE [Suspect]
     Dosage: 1.2 %, UNK
     Dates: start: 20061201
  18. NITROUS OXIDE [Suspect]
     Dosage: UNK
     Dates: start: 20060701
  19. NITROUS OXIDE [Suspect]
     Dosage: UNK
     Dates: start: 20061201
  20. PREGABALIN [Concomitant]
     Indication: PREMEDICATION
     Dosage: UNK
     Dates: start: 20070801
  21. DULOXETINE [Concomitant]
     Indication: PREMEDICATION
     Dosage: UNK
     Dates: start: 20070801
  22. TRAMADOL [Concomitant]
     Indication: PREMEDICATION
     Dosage: UNK
     Dates: start: 20060701
  23. TRAMADOL [Concomitant]
     Dosage: UNK
     Dates: start: 20070801
  24. ACETAMINOPHEN AND HYDROCODONE BITARTRATE [Concomitant]
     Indication: PREMEDICATION
  25. GABAPENTIN [Concomitant]
     Indication: PREMEDICATION
     Dosage: UNK
     Dates: start: 20060701
  26. ACETAMINOPHEN W/ PROPOXYPHENE HCL [Concomitant]
     Indication: PREMEDICATION
     Dosage: UNK
     Dates: start: 20060701
  27. BUPIVACAINE HCL [Interacting]
     Indication: ANAESTHESIA
     Dosage: TOTAL 36 ML
     Dates: start: 20060701

REACTIONS (6)
  - CENTRAL NERVOUS SYSTEM STIMULATION [None]
  - MYDRIASIS [None]
  - PROCEDURAL NAUSEA [None]
  - PROCEDURAL VOMITING [None]
  - SOMATOFORM DISORDER [None]
  - UNRESPONSIVE TO STIMULI [None]
